FAERS Safety Report 21537583 (Version 1)
Quarter: 2022Q4

REPORT INFORMATION
  Report Type: Spontaneous
  Country: US (occurrence: US)
  Receive Date: 20221101
  Receipt Date: 20221101
  Transmission Date: 20230113
  Serious: No
  Sender: FDA-Public Use
  Company Number: US-SA-SAC20221028001102

PATIENT
  Sex: Female

DRUGS (2)
  1. AUBAGIO [Suspect]
     Active Substance: TERIFLUNOMIDE
     Indication: Multiple sclerosis
     Dosage: UNK
     Route: 048
  2. KESIMPTA [Concomitant]
     Active Substance: OFATUMUMAB
     Dosage: UNK

REACTIONS (4)
  - Influenza like illness [Unknown]
  - Nausea [Unknown]
  - Abdominal discomfort [Unknown]
  - Headache [Unknown]
